FAERS Safety Report 19449792 (Version 1)
Quarter: 2021Q2

REPORT INFORMATION
  Report Type: Report from Study
  Country: BR (occurrence: BR)
  Receive Date: 20210622
  Receipt Date: 20210622
  Transmission Date: 20210717
  Serious: Yes (Other)
  Sender: FDA-Public Use
  Company Number: NVSC2021BR132224

PATIENT
  Age: 54 Year
  Sex: Female

DRUGS (2)
  1. COSENTYX [Suspect]
     Active Substance: SECUKINUMAB
     Dosage: UNK
     Route: 065
     Dates: start: 20210524
  2. COSENTYX [Suspect]
     Active Substance: SECUKINUMAB
     Indication: ANKYLOSING SPONDYLITIS
     Dosage: 150 MG
     Route: 065
     Dates: start: 20190626

REACTIONS (21)
  - Malaise [Unknown]
  - Drug ineffective [Unknown]
  - Pelvic pain [Unknown]
  - Dyskinesia [Unknown]
  - Product availability issue [Unknown]
  - Throat clearing [Unknown]
  - Spinal column injury [Unknown]
  - Intervertebral disc protrusion [Unknown]
  - Asthenia [Unknown]
  - Spinal shock [Unknown]
  - Nausea [Recovered/Resolved]
  - Arthropathy [Recovered/Resolved]
  - Immunodeficiency [Unknown]
  - COVID-19 [Unknown]
  - Pharyngitis [Unknown]
  - Stiff leg syndrome [Unknown]
  - Dizziness [Recovered/Resolved]
  - Vertigo [Recovered/Resolved]
  - Sciatica [Unknown]
  - Muscle rigidity [Unknown]
  - Pain [Recovering/Resolving]

NARRATIVE: CASE EVENT DATE: 202103
